FAERS Safety Report 12370359 (Version 2)
Quarter: 2016Q2

REPORT INFORMATION
  Report Type: Spontaneous
  Country: CH (occurrence: CH)
  Receive Date: 20160516
  Receipt Date: 20160623
  Transmission Date: 20160815
  Serious: Yes (Life-Threatening, Hospitalization, Other)
  Sender: FDA-Public Use
  Company Number: CH-009507513-1605CHE003841

PATIENT
  Age: 57 Year
  Sex: Male

DRUGS (15)
  1. IBUPROFEN. [Suspect]
     Active Substance: IBUPROFEN
  2. ALLOPURINOL. [Concomitant]
     Active Substance: ALLOPURINOL
  3. LOSARTAN POTASSIUM. [Suspect]
     Active Substance: LOSARTAN POTASSIUM
     Route: 048
  4. HYDROCHLOROTHIAZIDE. [Suspect]
     Active Substance: HYDROCHLOROTHIAZIDE
     Route: 048
  5. TOPIRAMATE. [Interacting]
     Active Substance: TOPIRAMATE
     Dosage: UP TO 50 MG TWICE A DAY
  6. METFORMIN [Concomitant]
     Active Substance: METFORMIN HYDROCHLORIDE
  7. MEFENAMIC ACID. [Suspect]
     Active Substance: MEFENAMIC ACID
  8. TOPIRAMATE. [Interacting]
     Active Substance: TOPIRAMATE
     Indication: ESSENTIAL TREMOR
     Dosage: INITIAL DOSAGE OF 25 MG PER DAY
  9. CLONAZEPAM. [Concomitant]
     Active Substance: CLONAZEPAM
  10. ESOMEPRAZOLE MAGNESIUM. [Concomitant]
     Active Substance: ESOMEPRAZOLE MAGNESIUM
  11. TOPIRAMATE. [Interacting]
     Active Substance: TOPIRAMATE
     Dosage: 50 MG ONCE A DAY
  12. CITALOPRAM [Interacting]
     Active Substance: CITALOPRAM HYDROBROMIDE
  13. PROPRANOLOL HYDROCHLORIDE. [Concomitant]
     Active Substance: PROPRANOLOL HYDROCHLORIDE
  14. TOPIRAMATE. [Interacting]
     Active Substance: TOPIRAMATE
     Dosage: DOSAGE WAS PROGRESSIVELY INCREASED
  15. TORSEMIDE. [Suspect]
     Active Substance: TORSEMIDE

REACTIONS (4)
  - Heat stroke [Recovered/Resolved]
  - Acute kidney injury [Recovered/Resolved]
  - Anhidrosis [Unknown]
  - Drug interaction [Unknown]

NARRATIVE: CASE EVENT DATE: 201507
